FAERS Safety Report 9936973 (Version 1)
Quarter: 2014Q1

REPORT INFORMATION
  Report Type: Spontaneous
  Country: US (occurrence: None)
  Receive Date: 20140115
  Receipt Date: 20140115
  Transmission Date: 20141002
  Serious: No
  Sender: FDA-Public Use
  Company Number: 2013US002684

PATIENT
  Age: 65 Year
  Sex: Female
  Weight: 120 kg

DRUGS (3)
  1. ICLUSIG (PONATINIB) TABLET, 15MG [Suspect]
     Indication: CHRONIC MYELOID LEUKAEMIA
     Route: 048
     Dates: start: 20131003, end: 20131006
  2. QUINAPRIL (QUINAPRIL) [Concomitant]
  3. LEVOTHYROXINE (LEVOTHYROXINE) [Concomitant]

REACTIONS (3)
  - Dysphagia [None]
  - Abdominal pain upper [None]
  - Back pain [None]
